FAERS Safety Report 6067197-1 (Version None)
Quarter: 2009Q1

REPORT INFORMATION
  Report Type: 
  Country: None (occurrence: None)
  Receive Date: 20090205
  Receipt Date: 20090127
  Transmission Date: 20090719
  Serious: Yes (Other)
  Sender: FDA-Public Use
  Company Number: PHEH2009US01281

PATIENT
  Sex: Male

DRUGS (1)
  1. GLEEVEC [Suspect]

REACTIONS (2)
  - DENTAL OPERATION [None]
  - GINGIVAL INFECTION [None]
